FAERS Safety Report 9724961 (Version 2)
Quarter: 2013Q4

REPORT INFORMATION
  Report Type: Spontaneous
  Country: US (occurrence: US)
  Receive Date: 20131202
  Receipt Date: 20131212
  Transmission Date: 20140711
  Serious: No
  Sender: FDA-Public Use
  Company Number: US-BAXTER-2013BAX047092

PATIENT
  Sex: Male

DRUGS (2)
  1. SUPRANE (DESFLURANE, USP) [Suspect]
     Indication: PRODUCT USED FOR UNKNOWN INDICATION
     Route: 061
  2. SUPRANE (DESFLURANE, USP) [Suspect]
     Indication: ACCIDENTAL EXPOSURE TO PRODUCT

REACTIONS (4)
  - Product odour abnormal [Recovered/Resolved]
  - Product colour issue [Recovered/Resolved]
  - Accidental exposure to product [Recovered/Resolved]
  - No adverse event [Recovered/Resolved]
